FAERS Safety Report 7525353-7 (Version None)
Quarter: 2011Q2

REPORT INFORMATION
  Report Type: 
  Country: None (occurrence: None)
  Receive Date: 20110526
  Receipt Date: 20110513
  Transmission Date: 20111010
  Serious: Yes (Hospitalization)
  Sender: FDA-Public Use
  Company Number: 2011MA005895

PATIENT
  Age: 64 Year
  Sex: Female

DRUGS (11)
  1. METFORMIN HCL [Concomitant]
  2. IRBESARTAN [Concomitant]
  3. GLYBURIDE [Concomitant]
  4. OMEPRAZOLE [Concomitant]
  5. FUROSEMIDE [Concomitant]
  6. METALAZONE [Concomitant]
  7. LEVOTHYROIXINE [Concomitant]
  8. LIPITOR [Concomitant]
  9. DOMPERIDONE [Concomitant]
  10. VENLAFAXINE HYDROCHLORIDE [Suspect]
     Dosage: 112.5 MG;OD
  11. DIGOXIN [Concomitant]

REACTIONS (6)
  - LOSS OF CONSCIOUSNESS [None]
  - ELECTROCARDIOGRAM QT PROLONGED [None]
  - HYPOKALAEMIA [None]
  - ATRIAL FIBRILLATION [None]
  - HYPOMAGNESAEMIA [None]
  - TORSADE DE POINTES [None]
